FAERS Safety Report 5476411-2 (Version None)
Quarter: 2007Q4

REPORT INFORMATION
  Report Type: 
  Country: None (occurrence: None)
  Receive Date: 20071003
  Receipt Date: 20070923
  Transmission Date: 20080405
  Serious: Yes (Hospitalization, Other)
  Sender: FDA-Public Use
  Company Number: BR-PFIZER INC-2007079961

PATIENT
  Sex: Male

DRUGS (5)
  1. SILDENAFIL (PAH) [Suspect]
     Indication: PULMONARY HYPERTENSION
     Route: 048
  2. LIPITOR [Suspect]
     Route: 048
  3. SPIRIVA [Concomitant]
  4. BUDESONIDE [Concomitant]
     Route: 045
  5. SERETIDE [Concomitant]

REACTIONS (9)
  - BLOOD CREATINE PHOSPHOKINASE INCREASED [None]
  - BLOOD CREATINE PHOSPHOKINASE MB INCREASED [None]
  - CATHETERISATION CARDIAC [None]
  - HYPOTENSION [None]
  - MYALGIA [None]
  - MYOGLOBINAEMIA [None]
  - RENAL FAILURE ACUTE [None]
  - RESPIRATORY FAILURE [None]
  - RHABDOMYOLYSIS [None]
